FAERS Safety Report 11654115 (Version 1)
Quarter: 2015Q4

REPORT INFORMATION
  Report Type: Spontaneous
  Country: FR (occurrence: FR)
  Receive Date: 20151023
  Receipt Date: 20151023
  Transmission Date: 20160304
  Serious: Yes (Hospitalization)
  Sender: FDA-Public Use
  Company Number: FR-PFIZER INC-2015338619

PATIENT
  Age: 44 Year
  Sex: Male

DRUGS (7)
  1. AUGMENTIN [Concomitant]
     Active Substance: AMOXICILLIN\CLAVULANATE POTASSIUM
     Dosage: UNK
     Dates: start: 20150724
  2. ADVIL [Suspect]
     Active Substance: IBUPROFEN
     Dosage: 1 DF, AS NEEDED
     Route: 048
     Dates: start: 20150727, end: 20150801
  3. TEGRETOL [Concomitant]
     Active Substance: CARBAMAZEPINE
  4. GUTRON [Concomitant]
     Active Substance: MIDODRINE
  5. TYSABRI [Suspect]
     Active Substance: NATALIZUMAB
     Indication: MULTIPLE SCLEROSIS
     Dosage: 300 MG, 1 IN 1  CYCLE
     Route: 041
     Dates: start: 20070801
  6. LAROXYL [Concomitant]
     Active Substance: AMITRIPTYLINE
  7. OFLOCET /00731801/ [Concomitant]
     Active Substance: OFLOXACIN
     Indication: ORCHITIS
     Dosage: UNK
     Dates: start: 201507, end: 20150724

REACTIONS (5)
  - Disease recurrence [Recovered/Resolved]
  - Oral herpes [Recovered/Resolved]
  - Myocarditis [Recovered/Resolved]
  - Infection [Recovered/Resolved]
  - Condition aggravated [Recovered/Resolved]

NARRATIVE: CASE EVENT DATE: 201508
